FAERS Safety Report 8573715-1 (Version None)
Quarter: 2012Q3

REPORT INFORMATION
  Report Type: 
  Country: None (occurrence: None)
  Receive Date: 20120806
  Receipt Date: 20120731
  Transmission Date: 20120928
  Serious: Yes (Hospitalization)
  Sender: FDA-Public Use
  Company Number: US-GLAXOSMITHKLINE-A0987710A

PATIENT
  Age: 64 Year
  Sex: Female

DRUGS (6)
  1. ALENDRONATE SODIUM [Concomitant]
  2. LEVOTHYROXINE SODIUM [Concomitant]
  3. TIZANIDINE HYDROCHLORIDE [Concomitant]
  4. FLUTICASONE PROPIONATE [Suspect]
     Indication: CHRONIC OBSTRUCTIVE PULMONARY DISEASE
     Dosage: 1PUFF TWICE PER DAY
     Route: 055
     Dates: start: 20070501
  5. CYCLOBENZAPRINE [Concomitant]
  6. PRILOSEC [Concomitant]

REACTIONS (4)
  - MUSCLE SPASMS [None]
  - ERYTHEMA [None]
  - SKIN ATROPHY [None]
  - LUNG INFECTION [None]
